FAERS Safety Report 5636101-X (Version None)
Quarter: 2008Q1

REPORT INFORMATION
  Report Type: 
  Country: None (occurrence: None)
  Receive Date: 20080225
  Receipt Date: 20080214
  Transmission Date: 20080703
  Serious: Yes (Other)
  Sender: FDA-Public Use
  Company Number: US-JNJFOC-20080203863

PATIENT
  Sex: Female
  Weight: 54.79 kg

DRUGS (7)
  1. DURAGESIC-100 [Suspect]
     Indication: ARTHRALGIA
     Route: 062
  2. FENTANYL TRANSDERMAL SYSTEM [Suspect]
     Indication: ARTHRALGIA
     Route: 062
  3. TYLENOL (CAPLET) [Concomitant]
     Indication: PAIN
     Route: 048
  4. XANAX [Concomitant]
     Indication: ANXIETY
     Route: 048
  5. NITRO-DUR [Concomitant]
     Indication: DRUG USE FOR UNKNOWN INDICATION
     Route: 062
  6. METOPROLOL TARTRATE [Concomitant]
     Indication: ATRIAL FIBRILLATION
     Route: 048
  7. PROTONIX [Concomitant]
     Indication: PROPHYLAXIS
     Route: 048

REACTIONS (4)
  - ABNORMAL BEHAVIOUR [None]
  - CONSTIPATION [None]
  - DEPRESSION [None]
  - UPPER RESPIRATORY TRACT INFECTION [None]
